FAERS Safety Report 5047654-7 (Version None)
Quarter: 2006Q3

REPORT INFORMATION
  Report Type: 
  Country: None (occurrence: None)
  Receive Date: 20060703
  Receipt Date: 20060622
  Transmission Date: 20061208
  Serious: Yes (Other)
  Sender: FDA-Public Use
  Company Number: HQWYE348123JUN06

PATIENT
  Age: 74 Year
  Sex: Male

DRUGS (9)
  1. CORDARONE [Suspect]
  2. BUMETANIDE [Concomitant]
  3. LEUPROLIDE ACETATE [Concomitant]
  4. LOSARTAN POTASSIUM [Concomitant]
  5. SPIRONOLACTONE [Concomitant]
  6. TAMSULOSIN HYDROCHLORIDE (TAMSULOSIN HYDROCHLORIDE) [Concomitant]
  7. WARFARIN SODIUM [Concomitant]
  8. MULTIVITAMINS (ASCORBIC ACID/ERGOCALCIFEROL/FOLIC ACID/NICOTINAMIDE/PA [Concomitant]
  9. IRON (IRON) [Concomitant]

REACTIONS (8)
  - BLOOD CREATINE INCREASED [None]
  - BONE MARROW FAILURE [None]
  - DYSPNOEA [None]
  - GRANULOMA [None]
  - IRON DEFICIENCY [None]
  - PANCYTOPENIA [None]
  - SERUM FERRITIN DECREASED [None]
  - VITAMIN B12 DEFICIENCY [None]
